FAERS Safety Report 4916156-8 (Version None)
Quarter: 2006Q1

REPORT INFORMATION
  Report Type: 
  Country: None (occurrence: None)
  Receive Date: 20060217
  Receipt Date: 20050930
  Transmission Date: 20060701
  Serious: Yes (Death, Other)
  Sender: FDA-Public Use
  Company Number: US-MERCK-0510USA01878

PATIENT
  Age: 92 Year
  Sex: Female
  Weight: 72 kg

DRUGS (14)
  1. VIOXX [Suspect]
     Indication: ARTHRALGIA
     Route: 048
     Dates: start: 20010329, end: 20011218
  2. VIOXX [Suspect]
     Indication: SHOULDER PAIN
     Route: 048
     Dates: start: 20010329, end: 20011218
  3. ACCUPRIL [Concomitant]
     Route: 065
  4. ACETAMINOPHEN [Concomitant]
     Route: 065
  5. BACTROBAN [Concomitant]
     Route: 065
  6. PROBENECID [Concomitant]
     Route: 065
  7. DIFLUCAN [Concomitant]
     Route: 065
  8. DOCUSATE CALCIUM [Concomitant]
     Route: 065
  9. GLYBURIDE [Concomitant]
     Route: 065
  10. MILK OF MAGNESIA TAB [Concomitant]
     Route: 065
  11. REMERON [Concomitant]
     Route: 065
  12. SULFAMETHOXAZOLE [Concomitant]
     Route: 065
  13. ZYPREXA [Concomitant]
     Route: 065
  14. ASPIRIN [Concomitant]
     Route: 065

REACTIONS (2)
  - CEREBROVASCULAR ACCIDENT [None]
  - TRANSIENT ISCHAEMIC ATTACK [None]
